FAERS Safety Report 5308289-1 (Version None)
Quarter: 2007Q2

REPORT INFORMATION
  Report Type: 
  Country: None (occurrence: None)
  Receive Date: 20070423
  Receipt Date: 20070423
  Transmission Date: 20071010
  Serious: Yes (Hospitalization)
  Sender: FDA-Public Use
  Company Number: None

PATIENT
  Sex: Female
  Weight: 68.0396 kg

DRUGS (3)
  1. CYMBALTA [Suspect]
     Indication: INTERVERTEBRAL DISC DEGENERATION
     Dosage: 30 MG  ONCE PER DAY  PO
     Route: 048
     Dates: start: 20070418, end: 20070418
  2. CYMBALTA [Suspect]
     Indication: PAIN IN EXTREMITY
     Dosage: 30 MG  ONCE PER DAY  PO
     Route: 048
     Dates: start: 20070418, end: 20070418
  3. METHADONE HCL [Concomitant]

REACTIONS (8)
  - ANXIETY [None]
  - DYSTONIA [None]
  - HEART RATE INCREASED [None]
  - HYPERHIDROSIS [None]
  - MUSCLE RIGIDITY [None]
  - NAUSEA [None]
  - PULSE ABNORMAL [None]
  - SOMNOLENCE [None]
